FAERS Safety Report 9014099 (Version 3)
Quarter: 2014Q1

REPORT INFORMATION
  Report Type: Spontaneous
  Country: GB (occurrence: GB)
  Receive Date: 20130115
  Receipt Date: 20140128
  Transmission Date: 20141002
  Serious: Yes (Hospitalization, Other)
  Sender: FDA-Public Use
  Company Number: GB-WATSON-2013-00236

PATIENT
  Age: 58 Year
  Sex: Male

DRUGS (7)
  1. LAMOTRIGINE (UNKNOWN) [Suspect]
     Indication: DEPRESSED MOOD
     Dosage: 100 MG, DAILY
     Route: 048
  2. VENLAFAXINE (UNKNOWN) [Suspect]
     Indication: DEPRESSION
     Dosage: 75 MG, DAILY; MODIFIED RELEASE
     Route: 048
  3. ARIPIPRAZOLE (UNKNOWN) [Suspect]
     Indication: PRODUCT USED FOR UNKNOWN INDICATION
     Dosage: 30 MG, DAILY, THE PATIENT WAS TAKING ARIPIPRAZOLE FOR: ADJUNCT TO CLOZAPINE.
     Route: 048
  4. MIRTAZAPINE (UNKNOWN) [Suspect]
     Indication: DEPRESSION
     Dosage: 45 MG, QHS; AT NIGHT
     Route: 048
  5. PROCYCLIDINE [Suspect]
     Indication: EXTRAPYRAMIDAL DISORDER
     Dosage: 10 MG, QHS; AT NIGHT
     Route: 048
  6. ZAPONEX [Suspect]
     Indication: SCHIZOPHRENIA
     Dosage: 225 MG, QHS; AT NIGHT; CLOZAPINE ZTAS BRAND FOR TREATMENT RESISTANT SCHIZOPHERENIA
     Route: 048
     Dates: start: 20120806
  7. KWELLS [Suspect]
     Indication: SALIVARY HYPERSECRETION
     Dosage: 300 MCG DAILY, AT NIGHT; TAKING KWEELS FOR THE TREATMENT OF HYPERSALIVATION CAUSED BY CLOZAPINE
     Route: 060

REACTIONS (12)
  - Neutropenia [Recovered/Resolved]
  - Leukopenia [Recovered/Resolved]
  - Anaemia [Not Recovered/Not Resolved]
  - Full blood count abnormal [Recovered/Resolved]
  - Lymphocyte count decreased [Not Recovered/Not Resolved]
  - Mean cell haemoglobin decreased [Not Recovered/Not Resolved]
  - White blood cell count decreased [Recovered/Resolved]
  - Platelet count decreased [Recovered/Resolved]
  - Mean cell volume decreased [Not Recovered/Not Resolved]
  - Red blood cell count decreased [Not Recovered/Not Resolved]
  - Neutrophil count decreased [Recovered/Resolved]
  - Haematocrit decreased [Not Recovered/Not Resolved]
